FAERS Safety Report 11583367 (Version 1)
Quarter: 2015Q3

REPORT INFORMATION
  Report Type: Spontaneous
  Country: None (occurrence: None)
  Receive Date: 20150930
  Receipt Date: 20150930
  Transmission Date: 20151125
  Serious: No
  Sender: FDA-Public Use
  Company Number: None

PATIENT
  Age: 63 Year
  Sex: Female
  Weight: 79.38 kg

DRUGS (6)
  1. CALCIUM/VITAMIN D SUPPLEMENTS [Concomitant]
  2. BIOTIN [Concomitant]
     Active Substance: BIOTIN
  3. JOINT LIQUID MSM CHONDROITIN GLUCOSAMINE [Concomitant]
  4. MICONAZOLE 1 [Suspect]
     Active Substance: MICONAZOLE NITRATE
     Indication: FUNGAL INFECTION
     Dosage: 1 SOFTGEL INSERT PLUS CREAM
     Route: 067
     Dates: start: 20150928
  5. ZYRTEC [Concomitant]
     Active Substance: CETIRIZINE HYDROCHLORIDE
  6. ASPRIN [Concomitant]
     Active Substance: ASPIRIN

REACTIONS (2)
  - Vulvovaginal burning sensation [None]
  - Vulvovaginal pain [None]

NARRATIVE: CASE EVENT DATE: 20150928
